FAERS Safety Report 16566751 (Version 2)
Quarter: 2019Q3

REPORT INFORMATION
  Report Type: Spontaneous
  Country: ES (occurrence: ES)
  Receive Date: 20190712
  Receipt Date: 20190718
  Transmission Date: 20191004
  Serious: Yes (Other)
  Sender: FDA-Public Use
  Company Number: ES-009507513-1907ESP004667

PATIENT
  Age: 83 Year
  Sex: Male

DRUGS (1)
  1. PEMBROLIZUMAB. [Suspect]
     Active Substance: PEMBROLIZUMAB
     Indication: MALIGNANT MELANOMA
     Dosage: UNK

REACTIONS (6)
  - Leukopenia [Recovered/Resolved]
  - Vitiligo [Not Recovered/Not Resolved]
  - Diarrhoea [Recovered/Resolved]
  - Xeroderma [Not Recovered/Not Resolved]
  - Blood thyroid stimulating hormone increased [Recovering/Resolving]
  - Thrombocytopenia [Recovered/Resolved]
